FAERS Safety Report 10480005 (Version 1)
Quarter: 2014Q3

REPORT INFORMATION
  Report Type: Spontaneous
  Country: JP (occurrence: JP)
  Receive Date: 20140929
  Receipt Date: 20140929
  Transmission Date: 20150326
  Serious: Yes (Disabling)
  Sender: FDA-Public Use
  Company Number: JP-009507513-1409JPN010963

PATIENT
  Age: 70 Year
  Sex: Male

DRUGS (2)
  1. MENESIT TABLETS - 100 [Suspect]
     Active Substance: CARBIDOPA\LEVODOPA
     Indication: PARKINSONISM
     Dosage: 1 TABLET, BID, IN THE MORNING AND EVENING RESPECTIVELY
     Route: 048
     Dates: end: 20140917
  2. MENESIT TABLETS - 100 [Suspect]
     Active Substance: CARBIDOPA\LEVODOPA
     Dosage: 0.5 TABLET, BID, IN THE MORNING AND EVENING RESPECTIVELY0.5 DF, BID
     Route: 048

REACTIONS (6)
  - Decreased appetite [Unknown]
  - Dizziness postural [Unknown]
  - Abasia [Unknown]
  - Headache [Unknown]
  - Dizziness [Unknown]
  - Impaired driving ability [Unknown]
